FAERS Safety Report 4993589-5 (Version None)
Quarter: 2006Q2

REPORT INFORMATION
  Report Type: 
  Country: None (occurrence: None)
  Receive Date: 20060505
  Receipt Date: 20020715
  Transmission Date: 20061013
  Serious: Yes (Hospitalization)
  Sender: FDA-Public Use
  Company Number: US-BRISTOL-MYERS SQUIBB COMPANY-11957735

PATIENT
  Age: 63 Year
  Sex: Female

DRUGS (7)
  1. METHOTREXATE [Suspect]
     Indication: BREAST CANCER
     Dates: start: 19840101
  2. ENDOXAN [Suspect]
     Indication: OVARIAN CANCER
     Route: 042
     Dates: start: 19931123, end: 19940426
  3. ENDOXAN [Suspect]
     Indication: BREAST CANCER
     Route: 042
     Dates: start: 19931123, end: 19940426
  4. PARAPLATIN [Suspect]
     Indication: OVARIAN CANCER
     Dates: start: 19931123, end: 19940426
  5. TENIPOSIDE [Suspect]
     Indication: BREAST CANCER
     Dates: start: 19840101
  6. ONCOVIN [Suspect]
     Indication: BREAST CANCER
     Dates: start: 19840101
  7. FLUOROURACIL [Suspect]
     Indication: BREAST CANCER
     Dates: start: 19840101

REACTIONS (2)
  - ACUTE MYELOID LEUKAEMIA [None]
  - PANCYTOPENIA [None]
